FAERS Safety Report 18356964 (Version 1)
Quarter: 2020Q4

REPORT INFORMATION
  Report Type: Report from Study
  Country: JP (occurrence: JP)
  Receive Date: 20201007
  Receipt Date: 20201007
  Transmission Date: 20210114
  Serious: Yes (Hospitalization)
  Sender: FDA-Public Use
  Company Number: JP-JNJFOC-20200950348

PATIENT
  Age: 69 Year
  Sex: Female

DRUGS (5)
  1. RHEUMATREX [Concomitant]
     Active Substance: METHOTREXATE SODIUM
     Dates: start: 20151120, end: 20180315
  2. AZULFIDINE EN-TABS [Concomitant]
     Active Substance: SULFASALAZINE
     Dates: start: 20161118
  3. CARERAM [Concomitant]
     Active Substance: IGURATIMOD
     Dates: start: 20161216
  4. SIMPONI [Suspect]
     Active Substance: GOLIMUMAB
     Route: 058
     Dates: start: 20160624, end: 20181102
  5. SIMPONI [Suspect]
     Active Substance: GOLIMUMAB
     Indication: PRODUCT USED FOR UNKNOWN INDICATION
     Route: 058
     Dates: start: 20160219, end: 20160520

REACTIONS (1)
  - Thyroid adenoma [Recovering/Resolving]

NARRATIVE: CASE EVENT DATE: 20190204
